FAERS Safety Report 5899529-9 (Version None)
Quarter: 2008Q3

REPORT INFORMATION
  Report Type: 
  Country: None (occurrence: None)
  Receive Date: 20080924
  Receipt Date: 20080827
  Transmission Date: 20090109
  Serious: Yes (Hospitalization)
  Sender: FDA-Public Use
  Company Number: CL001782008

PATIENT
  Age: 19 Year
  Sex: Female

DRUGS (8)
  1. ONDANSETRON [Suspect]
     Indication: NAUSEA
     Dosage: 4 MG, INTRAVENOUS
     Route: 042
  2. ONDANSETRON [Suspect]
     Indication: VOMITING
     Dosage: 4 MG, INTRAVENOUS
     Route: 042
  3. CYPROTERONE ACETATE [Concomitant]
  4. ETHINYL ESTRADIOL TAB [Concomitant]
  5. FINASTRERIDE [Concomitant]
  6. METFORMIN HCL [Concomitant]
  7. ROXYTHROMYCIN [Concomitant]
  8. RABEPRAZOLE SODIUM [Concomitant]

REACTIONS (3)
  - DRUG HYPERSENSITIVITY [None]
  - INJECTION SITE ERYTHEMA [None]
  - URTICARIA [None]
